FAERS Safety Report 23176966 (Version 1)
Quarter: 2023Q4

REPORT INFORMATION
  Report Type: Spontaneous
  Country: US (occurrence: US)
  Receive Date: 20231113
  Receipt Date: 20231113
  Transmission Date: 20240110
  Serious: Yes (Hospitalization)
  Sender: FDA-Public Use
  Company Number: US-MYLANLABS-2023M1120472

PATIENT
  Age: 16 Year
  Sex: Female

DRUGS (1)
  1. LEVOFLOXACIN [Suspect]
     Active Substance: LEVOFLOXACIN
     Indication: Ureaplasma infection
     Dosage: UNK, RENALLY-DOSED LEVOFLOXACIN EVERY OTHER DAY
     Route: 065

REACTIONS (1)
  - Hyperammonaemia [Recovering/Resolving]
